FAERS Safety Report 4476906-4 (Version None)
Quarter: 2004Q4

REPORT INFORMATION
  Report Type: 
  Country: None (occurrence: None)
  Receive Date: 20041012
  Receipt Date: 20040928
  Transmission Date: 20050328
  Serious: Yes (Other)
  Sender: FDA-Public Use
  Company Number: 8007478

PATIENT
  Age: 49 Year
  Weight: 89 kg

DRUGS (5)
  1. KEPPRA [Suspect]
     Indication: CONVULSION
     Dosage: 1500 MG PO
     Route: 048
     Dates: start: 20030101
  2. KEPPRA [Suspect]
     Indication: CONVULSION
     Dosage: PO
     Route: 048
     Dates: start: 20041001
  3. PRAVACHOL [Concomitant]
  4. COUMADIN [Concomitant]
  5. ZOLOFT [Concomitant]

REACTIONS (2)
  - INCREASED TENDENCY TO BRUISE [None]
  - THROMBOCYTOPENIA [None]
